FAERS Safety Report 23165789 (Version 2)
Quarter: 2023Q4

REPORT INFORMATION
  Report Type: Spontaneous
  Country: DK (occurrence: DK)
  Receive Date: 20231109
  Receipt Date: 20231122
  Transmission Date: 20240109
  Serious: Yes (Hospitalization)
  Sender: FDA-Public Use
  Company Number: DK-TEVA-2023-DK-2942721

PATIENT
  Sex: Female

DRUGS (9)
  1. PREDNISOLONE [Suspect]
     Active Substance: PREDNISOLONE
     Indication: Kaposiform haemangioendothelioma
     Dosage: 2 MG/KG DAILY; ONCE A DAY
     Route: 065
  2. PREDNISOLONE [Suspect]
     Active Substance: PREDNISOLONE
     Indication: Haemangioma-thrombocytopenia syndrome
     Dosage: DOSE REDUCED
     Route: 065
  3. VINCRISTINE [Concomitant]
     Active Substance: VINCRISTINE
     Indication: Kaposiform haemangioendothelioma
     Dosage: 0.05 MG/KG ONCE A WEEK
     Route: 065
  4. VINCRISTINE [Concomitant]
     Active Substance: VINCRISTINE
     Indication: Haemangioma-thrombocytopenia syndrome
  5. SIROLIMUS [Concomitant]
     Active Substance: SIROLIMUS
     Indication: Kaposiform haemangioendothelioma
     Dosage: 1.6 MG/M2 DAILY; TARGET WAS 5 TO 10 MICROGRAMS PER LITER, 0.8 MG/M2 TWICE A DAY
     Route: 048
  6. SIROLIMUS [Concomitant]
     Active Substance: SIROLIMUS
     Indication: Haemangioma-thrombocytopenia syndrome
  7. FIBRINOGEN [Concomitant]
     Active Substance: FIBRINOGEN HUMAN
     Indication: Product used for unknown indication
     Dosage: 30 UG/KG
     Route: 042
  8. ASPIRIN [Concomitant]
     Active Substance: ASPIRIN
     Indication: Platelet aggregation inhibition
     Dosage: 2 MG/KG DAILY; ONCE A DAY
     Route: 048
  9. ASPIRIN [Concomitant]
     Active Substance: ASPIRIN
     Indication: Thrombosis prophylaxis

REACTIONS (1)
  - Rebound effect [Unknown]
